FAERS Safety Report 14412790 (Version 1)
Quarter: 2018Q1

REPORT INFORMATION
  Report Type: Spontaneous
  Country: US (occurrence: US)
  Receive Date: 20180119
  Receipt Date: 20180119
  Transmission Date: 20180509
  Serious: Yes (Hospitalization)
  Sender: FDA-Public Use
  Company Number: None

PATIENT
  Age: 76 Year
  Sex: Female
  Weight: 67.6 kg

DRUGS (8)
  1. ATORVASTATIN [Concomitant]
     Active Substance: ATORVASTATIN
  2. BACTROBAN [Concomitant]
     Active Substance: MUPIROCIN\MUPIROCIN CALCIUM
  3. CA [Concomitant]
  4. VITAMIN D [Concomitant]
     Active Substance: CHOLECALCIFEROL
  5. NEURONTIN [Concomitant]
     Active Substance: GABAPENTIN
  6. ALENDRONATE [Concomitant]
     Active Substance: ALENDRONATE SODIUM
  7. WARFARIN [Suspect]
     Active Substance: WARFARIN
     Indication: DEEP VEIN THROMBOSIS
     Dosage: DATES OF USE - RECENT?FREQUENCY - ONCE DAILY W/DINNER
     Route: 048
  8. XARELTO [Suspect]
     Active Substance: RIVAROXABAN
     Indication: DEEP VEIN THROMBOSIS
     Dosage: DATES OF USE - RECENT?FREQUENCY - BID WITH MEALS
     Route: 048

REACTIONS (5)
  - International normalised ratio increased [None]
  - Thrombocytopenia [None]
  - Anaemia [None]
  - Acute leukaemia [None]
  - Accidental exposure to product [None]

NARRATIVE: CASE EVENT DATE: 20170919
